FAERS Safety Report 24056066 (Version 2)
Quarter: 2024Q3

REPORT INFORMATION
  Report Type: Spontaneous
  Country: JP (occurrence: JP)
  Receive Date: 20240705
  Receipt Date: 20240805
  Transmission Date: 20241016
  Serious: Yes (Other)
  Sender: PFIZER
  Company Number: JP-PFIZER INC-202400206301

PATIENT
  Age: 86 Year
  Sex: Female

DRUGS (1)
  1. HALCION [Suspect]
     Active Substance: TRIAZOLAM
     Dosage: UNK
     Route: 048
     Dates: start: 20230318

REACTIONS (4)
  - Wrong product administered [Unknown]
  - Road traffic accident [Unknown]
  - Loss of consciousness [Unknown]
  - Amnesia [Unknown]

NARRATIVE: CASE EVENT DATE: 20230318
